FAERS Safety Report 15966218 (Version 1)
Quarter: 2019Q1

REPORT INFORMATION
  Report Type: Spontaneous
  Country: US (occurrence: US)
  Receive Date: 20190215
  Receipt Date: 20190215
  Transmission Date: 20190418
  Serious: No
  Sender: FDA-Public Use
  Company Number: US-GLAXOSMITHKLINE-US2019023811

PATIENT
  Age: 59 Year
  Sex: Female

DRUGS (2)
  1. TRANSDERM SCOP [Suspect]
     Active Substance: SCOPOLAMINE
     Indication: NAUSEA
     Dosage: UNK UNK, PRN
  2. ZOFRAN [Suspect]
     Active Substance: ONDANSETRON HYDROCHLORIDE
     Indication: GASTROINTESTINAL DISORDER
     Dosage: UNK

REACTIONS (3)
  - Adverse drug reaction [Unknown]
  - Hallucination, auditory [Unknown]
  - Contraindicated product administered [Unknown]
